FAERS Safety Report 5109916-4 (Version None)
Quarter: 2006Q3

REPORT INFORMATION
  Report Type: 
  Country: None (occurrence: None)
  Receive Date: 20060731
  Receipt Date: 20060404
  Transmission Date: 20061208
  Serious: No
  Sender: FDA-Public Use
  Company Number: 2006PV011486

PATIENT
  Age: 80 Year
  Sex: Female
  Weight: 68.0396 kg

DRUGS (4)
  1. BYETTA [Suspect]
     Indication: DIABETES MELLITUS NON-INSULIN-DEPENDENT
     Dosage: 5 MCG;BID;SC
     Route: 058
     Dates: start: 20060322, end: 20060331
  2. TOPROL-XL [Concomitant]
  3. MICARDIS HCT [Concomitant]
  4. CLONIDINE [Concomitant]

REACTIONS (3)
  - BLOOD PRESSURE INCREASED [None]
  - TREMOR [None]
  - URTICARIA [None]
